FAERS Safety Report 7840645-X (Version None)
Quarter: 2011Q4

REPORT INFORMATION
  Report Type: 
  Country: None (occurrence: None)
  Receive Date: 20111025
  Receipt Date: 20110919
  Transmission Date: 20120403
  Serious: Yes (Other)
  Sender: FDA-Public Use
  Company Number: IT-BRISTOL-MYERS SQUIBB COMPANY-16184954

PATIENT
  Age: 83 Year
  Sex: Female

DRUGS (2)
  1. RIFAXIMIN [Suspect]
     Indication: DYSENTERY
     Dates: start: 20110802, end: 20110807
  2. COUMADIN [Suspect]
     Dosage: RECEIVED FROM 8AUG10-7AUG11 1DF:1 UNIT
     Route: 048
     Dates: start: 20100808

REACTIONS (3)
  - RECTAL HAEMORRHAGE [None]
  - HAEMATURIA [None]
  - DYSENTERY [None]
